FAERS Safety Report 4325858-6 (Version None)
Quarter: 2004Q1

REPORT INFORMATION
  Report Type: 
  Country: None (occurrence: None)
  Receive Date: 20040324
  Receipt Date: 20040312
  Transmission Date: 20041129
  Serious: Yes (Hospitalization)
  Sender: FDA-Public Use
  Company Number: US-JNJFOC-20040303167

PATIENT
  Age: 60 Year
  Sex: Male

DRUGS (7)
  1. INFLIXIMAB (INFLIXIMAB, RECOMBINANT) LYOPHILIZED POWDER [Suspect]
     Indication: RHEUMATOID ARTHRITIS
     Dosage: INTRAVENOUS
     Route: 042
     Dates: start: 20010220
  2. ATENOLOL [Concomitant]
  3. METHOTREXATE [Concomitant]
  4. PREDNISONE [Concomitant]
  5. TYLENOL [Concomitant]
  6. TOPROL (METOPROLOL SUCCINATE) [Concomitant]
  7. ASPIRIN [Concomitant]

REACTIONS (4)
  - CARDIAC DISORDER [None]
  - PAIN [None]
  - STENT PLACEMENT [None]
  - VASCULAR OCCLUSION [None]
